FAERS Safety Report 19213181 (Version 2)
Quarter: 2021Q2

REPORT INFORMATION
  Report Type: Spontaneous
  Country: KZ (occurrence: KZ)
  Receive Date: 20210504
  Receipt Date: 20210512
  Transmission Date: 20210717
  Serious: Yes (Death, Other)
  Sender: FDA-Public Use
  Company Number: KZ-SEATTLE GENETICS-2021SGN02550

PATIENT
  Sex: Female

DRUGS (2)
  1. ADCETRIS [Suspect]
     Active Substance: BRENTUXIMAB VEDOTIN
     Indication: HODGKIN^S DISEASE
     Dosage: 115 MILLIGRAM
     Route: 065
  2. BENDAMUSTINE [Suspect]
     Active Substance: BENDAMUSTINE
     Indication: HODGKIN^S DISEASE
     Dosage: 165 MILLIGRAM
     Route: 065

REACTIONS (8)
  - Leukopenia [Fatal]
  - Hodgkin^s disease [Fatal]
  - COVID-19 [Fatal]
  - Febrile neutropenia [Fatal]
  - Bronchitis chronic [Fatal]
  - Pulmonary fibrosis [Fatal]
  - Thrombocytopenia [Fatal]
  - Lung disorder [Fatal]
